FAERS Safety Report 22219628 (Version 1)
Quarter: 2023Q2

REPORT INFORMATION
  Report Type: Spontaneous
  Country: JP (occurrence: JP)
  Receive Date: 20230417
  Receipt Date: 20230417
  Transmission Date: 20230722
  Serious: Yes (Hospitalization, Other)
  Sender: FDA-Public Use
  Company Number: JP-GLAXOSMITHKLINE-JP2022JPN110610

PATIENT

DRUGS (16)
  1. DAPRODUSTAT [Suspect]
     Active Substance: DAPRODUSTAT
     Indication: Nephrogenic anaemia
     Dosage: 4 MG, QD
     Route: 048
     Dates: start: 20220523, end: 20220719
  2. DAPRODUSTAT [Suspect]
     Active Substance: DAPRODUSTAT
     Dosage: 6 MG
     Route: 048
     Dates: start: 20220720, end: 20220814
  3. DAPRODUSTAT [Suspect]
     Active Substance: DAPRODUSTAT
     Dosage: 8 MG
     Route: 048
     Dates: start: 20220815, end: 20220911
  4. DAPRODUSTAT [Suspect]
     Active Substance: DAPRODUSTAT
     Dosage: 12 MG
     Route: 048
     Dates: start: 20220912, end: 20221016
  5. DAPRODUSTAT [Suspect]
     Active Substance: DAPRODUSTAT
     Dosage: 18 MG
     Route: 048
     Dates: start: 20221017
  6. LEVOTHYROXINE SODIUM [Concomitant]
     Active Substance: LEVOTHYROXINE SODIUM
     Indication: Hypothyroidism
     Dosage: 50 MG, QD
     Route: 048
  7. PROTECADIN OD TABLET [Concomitant]
     Indication: Gastrooesophageal reflux disease
     Dosage: 10
  8. SENNOSIDES [Concomitant]
     Active Substance: SENNOSIDES
     Indication: Constipation
     Dosage: 12 MG, QD
     Route: 048
  9. ETIZOLAM [Concomitant]
     Active Substance: ETIZOLAM
     Indication: Sleep disorder
     Dosage: 0.5 MG, QD
     Route: 048
  10. FOSRENOL OD TABLET [Concomitant]
     Dosage: 125 MG, BID
  11. FEBUXOSTAT [Concomitant]
     Active Substance: FEBUXOSTAT
     Dosage: 10 MG, QD
     Route: 048
  12. REMITCH OD [Concomitant]
     Indication: Pruritus
     Dosage: 0.125 MG, BID
     Route: 048
  13. OLMESARTAN OD TABLETS [Concomitant]
     Dosage: 10 MG, BID
     Route: 048
  14. CARVEDILOL [Concomitant]
     Active Substance: CARVEDILOL
     Dosage: 5 MG, BID
     Route: 048
  15. NIFEDIPINE [Concomitant]
     Active Substance: NIFEDIPINE
     Dosage: 20 MG, BID
     Route: 048
  16. EVOCALCET [Concomitant]
     Active Substance: EVOCALCET
     Indication: Hyperparathyroidism secondary
     Dosage: UNK

REACTIONS (3)
  - Lacunar infarction [Recovering/Resolving]
  - Dyslalia [Recovered/Resolved]
  - Product use issue [Unknown]

NARRATIVE: CASE EVENT DATE: 20220609
